FAERS Safety Report 5686602-3 (Version None)
Quarter: 2008Q1

REPORT INFORMATION
  Report Type: 
  Country: None (occurrence: None)
  Receive Date: 20080328
  Receipt Date: 20070619
  Transmission Date: 20080703
  Serious: No
  Sender: FDA-Public Use
  Company Number: US-BAYER-US-2007-022985

PATIENT
  Age: 28 Year
  Sex: Female
  Weight: 79 kg

DRUGS (4)
  1. MIRENA [Suspect]
     Indication: CONTRACEPTION
     Route: 015
     Dates: start: 20070401
  2. FOLIC ACID [Concomitant]
  3. VITAMINS NOS [Concomitant]
  4. TYLENOL (CAPLET) [Concomitant]

REACTIONS (2)
  - MENSTRUATION IRREGULAR [None]
  - PHOTOSENSITIVITY REACTION [None]
